FAERS Safety Report 7209899 (Version 4)
Quarter: 2013Q2

REPORT INFORMATION
  Report Type: Spontaneous
  Country: US (occurrence: None)
  Receive Date: 20091210
  Receipt Date: 20121227
  Transmission Date: 20140414
  Serious: Yes (Hospitalization)
  Sender: FDA-Public Use
  Company Number: PHEH2009US17012

PATIENT
  Age: 78 Year
  Sex: Male

DRUGS (1)
  1. EXJADE [Suspect]
     Indication: SIDEROBLASTIC ANAEMIA
     Dosage: 1000 MG, ORAL, 1500 MG, ORAL, 1000 MG DAILY, ORAL
     Route: 048

REACTIONS (3)
  - RECTAL HAEMORRHAGE [None]
  - GASTROINTESTINAL HAEMORRHAGE [None]
  - Haematemesis [None]
